FAERS Safety Report 21231298 (Version 1)
Quarter: 2022Q3

REPORT INFORMATION
  Report Type: Spontaneous
  Country: US (occurrence: US)
  Receive Date: 20220819
  Receipt Date: 20220819
  Transmission Date: 20221026
  Serious: No
  Sender: FDA-Public Use
  Company Number: US-SANOFI-01234729

PATIENT
  Age: 72 Year
  Sex: Female

DRUGS (1)
  1. DUPIXENT [Suspect]
     Active Substance: DUPILUMAB
     Indication: Eczema
     Dosage: 300 MG, QOW

REACTIONS (4)
  - Injection site haemorrhage [Unknown]
  - Needle issue [Unknown]
  - Injury associated with device [Unknown]
  - Product preparation error [Unknown]

NARRATIVE: CASE EVENT DATE: 20220809
